FAERS Safety Report 19864720 (Version 1)
Quarter: 2021Q3

REPORT INFORMATION
  Report Type: Spontaneous
  Country: PL (occurrence: PL)
  Receive Date: 20210922
  Receipt Date: 20210922
  Transmission Date: 20211014
  Serious: Yes (Other)
  Sender: FDA-Public Use
  Company Number: PL-TEVA-2021-PL-1955205

PATIENT
  Age: 5 Year
  Sex: Female

DRUGS (8)
  1. ACTINOMYCIN D [Suspect]
     Active Substance: DACTINOMYCIN
     Indication: NEPHROBLASTOMA
     Dosage: ACCORDING TO THE SIOP 2001/2006 PROTOCOL
     Route: 065
  2. CYCLOPHOSPHAMIDE. [Suspect]
     Active Substance: CYCLOPHOSPHAMIDE
     Indication: NEPHROBLASTOMA
     Dosage: TWO CYCLES ACCORDING TO THE SIOP 2001/2006 PROTOCOL
     Route: 065
  3. CARBOPLATIN. [Suspect]
     Active Substance: CARBOPLATIN
     Indication: NEPHROBLASTOMA
     Dosage: TWO CYCLES ACCORDING TO THE SIOP 2001/2006 PROTOCOL
     Route: 065
  4. DOXORUBICIN [Suspect]
     Active Substance: DOXORUBICIN
     Indication: NEPHROBLASTOMA
     Route: 065
  5. CISPLATIN. [Suspect]
     Active Substance: CISPLATIN
     Indication: NEPHROBLASTOMA
     Dosage: TWO CYCLES ACCORDING TO THE SIOP 2001/2006 PROTOCOL
     Route: 065
  6. ETOPOSIDE. [Suspect]
     Active Substance: ETOPOSIDE
     Indication: NEPHROBLASTOMA
     Dosage: TWO CYCLES ACCORDING TO THE SIOP 2001/2006 PROTOCOL
     Route: 065
  7. VINCRISTINE [Suspect]
     Active Substance: VINCRISTINE
     Indication: NEPHROBLASTOMA
     Dosage: ACCORDING TO THE SIOP 2001/2006 PROTOCOL
     Route: 065
  8. IFOSFAMIDE. [Suspect]
     Active Substance: IFOSFAMIDE
     Indication: NEPHROBLASTOMA
     Dosage: TWO CYCLES ACCORDING TO THE SIOP 2001/2006 PROTOCOL
     Route: 065

REACTIONS (4)
  - Polyneuropathy [Recovering/Resolving]
  - Renal tubular acidosis [Unknown]
  - Bone marrow failure [Unknown]
  - Fanconi syndrome acquired [Unknown]
